FAERS Safety Report 6051365-9 (Version None)
Quarter: 2009Q1

REPORT INFORMATION
  Report Type: 
  Country: None (occurrence: None)
  Receive Date: 20090126
  Receipt Date: 20090114
  Transmission Date: 20090719
  Serious: Yes (Hospitalization)
  Sender: FDA-Public Use
  Company Number: JP-PFIZER INC-2008096684

PATIENT

DRUGS (5)
  1. HYSRON [Suspect]
     Indication: BREAST CANCER
     Dosage: 400 MG, 3X/DAY
     Route: 048
     Dates: start: 20000201, end: 20070919
  2. PARIET [Concomitant]
     Dosage: UNK
     Route: 048
  3. SELBEX [Concomitant]
     Dosage: UNK
     Route: 048
  4. ALPINYL [Concomitant]
     Dosage: UNK
     Route: 054
  5. ASPIRIN [Concomitant]
     Dosage: UNK
     Route: 048

REACTIONS (1)
  - DIABETES MELLITUS [None]
